FAERS Safety Report 19862208 (Version 1)
Quarter: 2021Q3

REPORT INFORMATION
  Report Type: Spontaneous
  Country: DE (occurrence: DE)
  Receive Date: 20210921
  Receipt Date: 20210921
  Transmission Date: 20211014
  Serious: Yes (Hospitalization, Other)
  Sender: FDA-Public Use
  Company Number: DE-SHILPA MEDICARE LIMITED-SML-DE-2021-01111

PATIENT
  Age: 70 Year
  Sex: Female

DRUGS (2)
  1. GEMCITABINE, UNKNOWN [Suspect]
     Active Substance: GEMCITABINE
     Indication: DUCTAL ADENOCARCINOMA OF PANCREAS
     Dosage: 1000 MG/M2
     Route: 042
     Dates: start: 20200624, end: 20210412
  2. ABRAXANE [Suspect]
     Active Substance: PACLITAXEL
     Indication: DUCTAL ADENOCARCINOMA OF PANCREAS
     Dosage: 125 MG/M2
     Route: 042
     Dates: start: 20200624, end: 20210310

REACTIONS (5)
  - Pneumonia [Recovered/Resolved with Sequelae]
  - C-reactive protein increased [Unknown]
  - Dyspnoea [Recovering/Resolving]
  - Facial paresis [Unknown]
  - White blood cell count increased [Unknown]

NARRATIVE: CASE EVENT DATE: 20210406
